FAERS Safety Report 21046593 (Version 1)
Quarter: 2022Q3

REPORT INFORMATION
  Report Type: Spontaneous
  Country: GB (occurrence: GB)
  Receive Date: 20220706
  Receipt Date: 20220706
  Transmission Date: 20221027
  Serious: Yes (Other)
  Sender: FDA-Public Use
  Company Number: None

PATIENT
  Age: 60 Year
  Sex: Male
  Weight: 107.8 kg

DRUGS (9)
  1. APIXABAN [Suspect]
     Active Substance: APIXABAN
     Indication: Product used for unknown indication
     Route: 048
     Dates: start: 20201101, end: 20220628
  2. ATORVASTATIN [Concomitant]
     Active Substance: ATORVASTATIN
     Dosage: 2 TO BE TAKEN AT NIGHT
     Dates: start: 20220609
  3. BETAMETHASONE [Concomitant]
     Active Substance: BETAMETHASONE
     Dosage: APPLY TOPICALLY TWICE A DAY?ROUTE OF ADMINISTRATION: TOPICAL
     Dates: start: 20220404
  4. CETRABEN [Concomitant]
     Dosage: APPLY TOPICALLY WHEN REQUIRED?ROUTE OF ADMINISTRATION: TOPICAL
     Dates: start: 20220404
  5. EUMOVATE [Concomitant]
     Active Substance: CLOBETASONE BUTYRATE
     Dosage: TOPICAL TWICE A DAY?ROUTE OF ADMINISTRATION: TOPICAL
     Dates: start: 20220405
  6. GLICLAZIDE [Concomitant]
     Active Substance: GLICLAZIDE
     Dosage: 1 TO BE TAKEN DAILY WITH BREAKFAST AND INCREASE AS ADVISED
     Dates: start: 20220609
  7. LORATADINE [Concomitant]
     Active Substance: LORATADINE
     Dosage: 1 DAILY
     Dates: start: 20220404
  8. DILTIAZEM HYDROCHLORIDE [Concomitant]
     Active Substance: DILTIAZEM HYDROCHLORIDE
     Dosage: 1 TO BE TAKEN EACH DAY
     Dates: start: 20220609
  9. VENTOLIN [Concomitant]
     Active Substance: ALBUTEROL SULFATE
     Dosage: 2 PUFFS WHEN NEEDED
     Dates: start: 20220404

REACTIONS (2)
  - Rash erythematous [Recovering/Resolving]
  - Pain in extremity [Unknown]

NARRATIVE: CASE EVENT DATE: 20211028
